FAERS Safety Report 7853397 (Version 6)
Quarter: 2013Q2

REPORT INFORMATION
  Report Type: Spontaneous
  Country: US (occurrence: US)
  Receive Date: 20110314
  Receipt Date: 20130422
  Transmission Date: 20140414
  Serious: Yes (Hospitalization)
  Sender: FDA-Public Use
  Company Number: US-BIOGENIDEC-2011BI008644

PATIENT
  Age: 57 Year
  Sex: Female

DRUGS (7)
  1. AVONEX [Suspect]
     Indication: MULTIPLE SCLEROSIS
     Route: 030
     Dates: start: 19990101, end: 20101212
  2. AVONEX [Suspect]
     Indication: MULTIPLE SCLEROSIS
     Route: 030
     Dates: start: 20110322, end: 20120912
  3. AVONEX [Suspect]
     Indication: MULTIPLE SCLEROSIS
     Route: 030
     Dates: start: 20120919
  4. ADVAIR [Concomitant]
     Indication: ASTHMA
  5. ADVAIR [Concomitant]
     Indication: MULTIPLE ALLERGIES
  6. SINGULAIR [Concomitant]
     Indication: ASTHMA
  7. SINGULAIR [Concomitant]
     Indication: MULTIPLE ALLERGIES

REACTIONS (8)
  - Cardiac failure congestive [Recovered/Resolved]
  - Aspergilloma [Recovered/Resolved]
  - Aortic valve stenosis [Recovered/Resolved]
  - Mitral valve incompetence [Recovered/Resolved]
  - Total lung capacity decreased [Not Recovered/Not Resolved]
  - Asthma [Not Recovered/Not Resolved]
  - Chills [Recovered/Resolved]
  - Influenza like illness [Recovered/Resolved]
